FAERS Safety Report 6178509-2 (Version None)
Quarter: 2009Q2

REPORT INFORMATION
  Report Type: 
  Country: None (occurrence: None)
  Receive Date: 20090504
  Receipt Date: 20090424
  Transmission Date: 20091009
  Serious: Yes (Other)
  Sender: FDA-Public Use
  Company Number: US-AMGEN-QUU323917

PATIENT
  Sex: Female

DRUGS (3)
  1. ENBREL [Suspect]
     Indication: RHEUMATOID ARTHRITIS
     Route: 058
  2. METHOTREXATE [Concomitant]
     Route: 048
  3. PLAQUENIL [Concomitant]
     Route: 048

REACTIONS (7)
  - BRONCHITIS [None]
  - DYSPNOEA [None]
  - FIBROMYALGIA [None]
  - HAEMOPTYSIS [None]
  - INJECTION SITE IRRITATION [None]
  - RESPIRATORY TRACT CONGESTION [None]
  - SINUSITIS [None]
